FAERS Safety Report 10355460 (Version 3)
Quarter: 2016Q2

REPORT INFORMATION
  Report Type: Spontaneous
  Country: US (occurrence: US)
  Receive Date: 20140731
  Receipt Date: 20160603
  Transmission Date: 20160815
  Serious: Yes (Hospitalization, Other)
  Sender: FDA-Public Use
  Company Number: US-JNJFOC-20140714575

PATIENT
  Age: 22 Year
  Sex: Female
  Weight: 51.26 kg

DRUGS (4)
  1. XANAX [Concomitant]
     Active Substance: ALPRAZOLAM
     Indication: ANXIETY
     Route: 065
  2. KEPPRA [Concomitant]
     Active Substance: LEVETIRACETAM
     Indication: SEIZURE
     Route: 065
     Dates: start: 2010, end: 2012
  3. TYLENOL EXTRA STRENGTH [Suspect]
     Active Substance: ACETAMINOPHEN
     Indication: TOOTHACHE
     Dosage: 3 DOSES, 2-3 TIMES EACH DAY, APPROXIMATELY 3000MG A DAY
     Route: 048
     Dates: start: 20120919, end: 20120920
  4. TYLENOL EXTRA STRENGTH [Suspect]
     Active Substance: ACETAMINOPHEN
     Indication: PAIN IN JAW
     Dosage: 3 DOSES, 2-3 TIMES EACH DAY, APPROXIMATELY 3000MG A DAY
     Route: 048
     Dates: start: 20120919, end: 20120920

REACTIONS (2)
  - Hepatitis toxic [Unknown]
  - Overdose [Recovering/Resolving]

NARRATIVE: CASE EVENT DATE: 201209
